FAERS Safety Report 5169824-X (Version None)
Quarter: 2006Q4

REPORT INFORMATION
  Report Type: 
  Country: None (occurrence: None)
  Receive Date: 20061212
  Receipt Date: 20061031
  Transmission Date: 20070319
  Serious: Yes (Hospitalization)
  Sender: FDA-Public Use
  Company Number: PHBS2006JP17128

PATIENT
  Age: 5 Year
  Sex: Male

DRUGS (2)
  1. TEGRETOL [Suspect]
     Indication: EPILEPSY
     Route: 048
  2. DEPAS [Suspect]
     Route: 048

REACTIONS (2)
  - HYPERINSULINAEMIA [None]
  - HYPOGLYCAEMIA [None]
